FAERS Safety Report 4406850-X (Version None)
Quarter: 2004Q3

REPORT INFORMATION
  Report Type: 
  Country: None (occurrence: None)
  Receive Date: 20040723
  Receipt Date: 20040717
  Transmission Date: 20050211
  Serious: Yes (Death)
  Sender: FDA-Public Use
  Company Number: AE-MERCK-0407USA01402

PATIENT
  Age: 66 Year
  Sex: Female

DRUGS (3)
  1. CANCIDAS [Suspect]
     Indication: SYSTEMIC ANTIFUNGAL TREATMENT
     Route: 042
     Dates: start: 20040419, end: 20040421
  2. CANCIDAS [Suspect]
     Route: 042
     Dates: start: 20040418, end: 20040418
  3. FLUCONAZOLE [Concomitant]
     Route: 042
     Dates: start: 20040410, end: 20040421

REACTIONS (3)
  - CHRONIC LYMPHOCYTIC LEUKAEMIA [None]
  - PNEUMONIA [None]
  - SEPTIC SHOCK [None]
